FAERS Safety Report 5854982-1 (Version None)
Quarter: 2008Q3

REPORT INFORMATION
  Report Type: 
  Country: None (occurrence: None)
  Receive Date: 20080822
  Receipt Date: 20080418
  Transmission Date: 20090109
  Serious: No
  Sender: FDA-Public Use
  Company Number: US-ABBOTT-08P-163-0448003-00

PATIENT
  Sex: Female
  Weight: 65.376 kg

DRUGS (3)
  1. SYNTHROID [Suspect]
     Indication: HYPOTHYROIDISM
     Dosage: 1 IN 1 DAY
     Route: 048
     Dates: start: 19980101
  2. SYNTHROID [Suspect]
     Route: 048
     Dates: start: 19910101, end: 19980101
  3. IBANDRONATE SODIUM [Concomitant]
     Indication: OSTEOPENIA
     Route: 048

REACTIONS (2)
  - ANXIETY [None]
  - DYSPNOEA [None]
